FAERS Safety Report 9961162 (Version 1)
Quarter: 2014Q1

REPORT INFORMATION
  Report Type: Spontaneous
  Country: US (occurrence: US)
  Receive Date: 20140305
  Receipt Date: 20140305
  Transmission Date: 20141002
  Serious: Yes (Other)
  Sender: FDA-Public Use
  Company Number: US-BAYER-2014-033862

PATIENT
  Sex: Female

DRUGS (1)
  1. NEXAVAR [Suspect]
     Dosage: 400 MG, BID

REACTIONS (1)
  - Palmar-plantar erythrodysaesthesia syndrome [None]
